FAERS Safety Report 8841324 (Version 2)
Quarter: 2012Q4

REPORT INFORMATION
  Report Type: 
  Country: FR (occurrence: FR)
  Receive Date: 20121015
  Receipt Date: 20121116
  Transmission Date: 20130627
  Serious: Yes (Death)
  Sender: FDA-Public Use
  Company Number: FR-PFIZER INC-2012252622

PATIENT
  Age: 62 Year
  Sex: Male

DRUGS (1)
  1. SUTENT [Suspect]
     Indication: METASTATIC RENAL CELL CARCINOMA
     Dosage: 50 mg, UNK
     Dates: end: 201202

REACTIONS (2)
  - Disease progression [Fatal]
  - Renal cancer metastatic [Fatal]
